FAERS Safety Report 6489658-3 (Version None)
Quarter: 2009Q4

REPORT INFORMATION
  Report Type: 
  Country: None (occurrence: None)
  Receive Date: 20091207
  Receipt Date: 20091201
  Transmission Date: 20100525
  Serious: Yes (Hospitalization)
  Sender: FDA-Public Use
  Company Number: TPA2009A03664

PATIENT
  Age: 79 Year
  Sex: Female
  Weight: 78.3362 kg

DRUGS (5)
  1. KAPIDEX [Suspect]
     Indication: DRUG USE FOR UNKNOWN INDICATION
     Dosage: 60 MG, 1 IN 1 D, PER ORAL
     Route: 048
     Dates: start: 20090627, end: 20090801
  2. KAPIDEX [Suspect]
     Indication: GASTROOESOPHAGEAL REFLUX DISEASE
     Dosage: 60 MG, 1 IN 1 D, PER ORAL
     Route: 048
     Dates: start: 20090627, end: 20090801
  3. DURAGESIC-100 [Concomitant]
  4. LOVASTATIN [Concomitant]
  5. LOTREL [Concomitant]

REACTIONS (1)
  - INTESTINAL OBSTRUCTION [None]
